FAERS Safety Report 4725570-5 (Version None)
Quarter: 2005Q3

REPORT INFORMATION
  Report Type: 
  Country: None (occurrence: None)
  Receive Date: 20050727
  Receipt Date: 20050711
  Transmission Date: 20060218
  Serious: Yes (Hospitalization)
  Sender: FDA-Public Use
  Company Number: US-BRACCO-BDI-007350

PATIENT
  Sex: Male

DRUGS (2)
  1. ISOVUE [Suspect]
     Route: 037
     Dates: start: 20050707, end: 20050707
  2. ISOVUE [Suspect]
     Route: 037
     Dates: start: 20050707, end: 20050707

REACTIONS (2)
  - MENINGITIS ASEPTIC [None]
  - PHOTOPHOBIA [None]
